FAERS Safety Report 16373520 (Version 2)
Quarter: 2019Q3

REPORT INFORMATION
  Report Type: Report from Study
  Country: US (occurrence: US)
  Receive Date: 20190530
  Receipt Date: 20190702
  Transmission Date: 20191004
  Serious: No
  Sender: FDA-Public Use
  Company Number: US-SA-2019SA144663

PATIENT
  Age: 17 Year
  Sex: Male

DRUGS (2)
  1. DUPILUMAB [Suspect]
     Active Substance: DUPILUMAB
     Indication: DERMATITIS ATOPIC
     Dosage: 2 DF, 1X
     Route: 058
     Dates: start: 20190511, end: 20190511
  2. DUPILUMAB [Suspect]
     Active Substance: DUPILUMAB
     Indication: ECZEMA
     Dosage: 200 MG, QOW
     Route: 058
     Dates: start: 201905

REACTIONS (2)
  - Drug ineffective [Unknown]
  - Blood pressure increased [Unknown]

NARRATIVE: CASE EVENT DATE: 20190625
